FAERS Safety Report 15264963 (Version 1)
Quarter: 2018Q3

REPORT INFORMATION
  Report Type: Spontaneous
  Country: US (occurrence: US)
  Receive Date: 20180723
  Receipt Date: 20180723
  Transmission Date: 20181010
  Serious: Yes (Hospitalization)
  Sender: FDA-Public Use
  Company Number: None

PATIENT
  Age: 74 Year
  Sex: Male
  Weight: 76.5 kg

DRUGS (11)
  1. MEKINIST [Suspect]
     Active Substance: TRAMETINIB DIMETHYL SULFOXIDE
     Indication: LUNG CANCER METASTATIC
     Route: 048
     Dates: start: 20180702
  2. ATIVAN 0.5MG [Concomitant]
  3. MEDICAL MARIJUANA [Concomitant]
     Active Substance: CANNABIS SATIVA SUBSP. INDICA TOP
  4. TAFINLAR [Suspect]
     Active Substance: DABRAFENIB MESYLATE
     Indication: LUNG CANCER METASTATIC
     Route: 048
     Dates: start: 20180705
  5. TUMS [Concomitant]
     Active Substance: CALCIUM CARBONATE
  6. TRIAMCINOLONE 0.5MG [Concomitant]
  7. LEVOTHYROXINE 137MCG [Concomitant]
     Active Substance: LEVOTHYROXINE
  8. ZANTAC [Concomitant]
     Active Substance: RANITIDINE HYDROCHLORIDE
  9. COLACE [Concomitant]
     Active Substance: DOCUSATE SODIUM
  10. VITAMIN D3 [Concomitant]
     Active Substance: CHOLECALCIFEROL
  11. PREDNISONE 30MG [Concomitant]

REACTIONS (2)
  - Dehydration [None]
  - Loss of consciousness [None]

NARRATIVE: CASE EVENT DATE: 20180720
